FAERS Safety Report 6046628-7 (Version None)
Quarter: 2009Q1

REPORT INFORMATION
  Report Type: 
  Country: None (occurrence: None)
  Receive Date: 20090122
  Receipt Date: 20090119
  Transmission Date: 20090719
  Serious: Yes (Death, Other)
  Sender: FDA-Public Use
  Company Number: PHHY2008IT26945

PATIENT
  Sex: Male
  Weight: 90 kg

DRUGS (5)
  1. SANDIMMUNE [Suspect]
     Indication: PYODERMA GANGRENOSUM
     Dosage: 250 MG/DAY
     Route: 048
     Dates: start: 20051110, end: 20080317
  2. HUMIRA [Suspect]
     Indication: PYODERMA GANGRENOSUM
     Dosage: 40 MG CYCLIC/2 WEEKS
     Route: 058
     Dates: start: 20071001, end: 20080317
  3. HUMIRA [Suspect]
     Dosage: 40 MG, QW
  4. CORTICOSTEROIDS [Concomitant]
     Indication: PYODERMA GANGRENOSUM
  5. DAPSONE [Concomitant]
     Dosage: 200 MG/DAY
     Route: 048
     Dates: start: 20070301

REACTIONS (23)
  - ABASIA [None]
  - ANAEMIA [None]
  - AORTIC ARTERIOSCLEROSIS [None]
  - AORTIC THROMBOSIS [None]
  - ASTHENIA [None]
  - GENERAL PHYSICAL HEALTH DETERIORATION [None]
  - LUNG CARCINOMA CELL TYPE UNSPECIFIED STAGE IV [None]
  - LUNG NEOPLASM [None]
  - LYMPHADENOPATHY [None]
  - METASTASES TO ADRENALS [None]
  - METASTASES TO GASTROINTESTINAL TRACT [None]
  - METASTASES TO KIDNEY [None]
  - METASTASES TO LIVER [None]
  - METASTASES TO LYMPH NODES [None]
  - METASTASES TO SKIN [None]
  - NODULE [None]
  - PAIN [None]
  - PERICARDIAL EFFUSION [None]
  - PLEURAL EFFUSION [None]
  - PYODERMA GANGRENOSUM [None]
  - SKIN ULCER [None]
  - SUBCUTANEOUS NODULE [None]
  - THROMBOCYTOPENIA [None]
